FAERS Safety Report 9295557 (Version 1)
Quarter: 2013Q2

REPORT INFORMATION
  Report Type: Spontaneous
  Country: US (occurrence: None)
  Receive Date: 20130514
  Receipt Date: 20130514
  Transmission Date: 20140414
  Serious: Yes (Other)
  Sender: FDA-Public Use
  Company Number: YSA/USA/13/0029522

PATIENT
  Age: 25 Year
  Sex: Female

DRUGS (5)
  1. TACROLIMUS (TACROLIMUS) [Suspect]
     Indication: IMMUNOSUPPRESSION
  2. PREDNISONE [Suspect]
     Indication: IMMUNOSUPPRESSION
  3. MYCOPHENOLATE MOFETIL [Suspect]
     Indication: IMMUNOSUPPRESSION
  4. SIROLIMUS [Suspect]
     Indication: IMMUNOSUPPRESSION
     Dosage: 3 MG 2 IN 1D.
  5. TRIMETHOPRIM + SULFAMETHOXAZOLE [Suspect]
     Indication: PROPHYLAXIS
     Dosage: 1 DOSAGE FORMS, 1 IN 1 D, UNKNOWN

REACTIONS (12)
  - Thrombotic microangiopathy [None]
  - Fatigue [None]
  - Contusion [None]
  - Decreased appetite [None]
  - Nausea [None]
  - Abdominal pain [None]
  - Vomiting [None]
  - Ecchymosis [None]
  - Abdominal tenderness [None]
  - Normochromic normocytic anaemia [None]
  - Blood creatine increased [None]
  - Renal failure acute [None]
